FAERS Safety Report 23393446 (Version 2)
Quarter: 2024Q1

REPORT INFORMATION
  Report Type: Report from Study
  Country: CN (occurrence: None)
  Receive Date: 20240111
  Receipt Date: 20240119
  Transmission Date: 20240409
  Serious: Yes (Hospitalization)
  Sender: FDA-Public Use
  Company Number: 2023A197442

PATIENT
  Age: 782 Month
  Sex: Male

DRUGS (5)
  1. LOKELMA [Suspect]
     Active Substance: SODIUM ZIRCONIUM CYCLOSILICATE
     Indication: Hyperkalaemia
     Dosage: 5 G
     Route: 048
     Dates: start: 20230412, end: 20231013
  2. FELODIPINE [Concomitant]
     Active Substance: FELODIPINE
     Indication: Hypertension
     Dates: start: 20210325
  3. BETALOC TABLET (METAPROLOL TARTARATE) [Concomitant]
     Indication: Hypertension
     Dates: start: 20210325
  4. ERYTHROPOIETIN [Concomitant]
     Active Substance: ERYTHROPOIETIN
     Indication: Nephrogenic anaemia
     Dosage: 14000 IU DAILY
     Dates: start: 20220913
  5. LANTHANUM CARBONATE [Concomitant]
     Active Substance: LANTHANUM CARBONATE
     Indication: Hyperphosphataemia
     Dates: start: 20221025

REACTIONS (1)
  - Mallory-Weiss syndrome [Recovered/Resolved]

NARRATIVE: CASE EVENT DATE: 20230626
